FAERS Safety Report 12543435 (Version 1)
Quarter: 2016Q3

REPORT INFORMATION
  Report Type: Spontaneous
  Country: US (occurrence: US)
  Receive Date: 20160711
  Receipt Date: 20160711
  Transmission Date: 20161109
  Serious: No
  Sender: FDA-Public Use
  Company Number: US-TEVA-625896USA

PATIENT
  Age: 53 Year
  Sex: Female

DRUGS (3)
  1. VIVELLE-DOT [Concomitant]
     Active Substance: ESTRADIOL
  2. VENLAFAXINE [Suspect]
     Active Substance: VENLAFAXINE HYDROCHLORIDE
     Dosage: 75 MILLIGRAM DAILY;
     Route: 065
     Dates: start: 201511
  3. PROMETRIUM [Concomitant]
     Active Substance: PROGESTERONE
     Dosage: 100 MILLIGRAM DAILY; AT BEDTIME

REACTIONS (5)
  - Discomfort [Unknown]
  - Somnolence [Unknown]
  - Hypoaesthesia oral [Unknown]
  - Hypersomnia [Unknown]
  - Euphoric mood [Unknown]
